FAERS Safety Report 17918181 (Version 1)
Quarter: 2020Q2

REPORT INFORMATION
  Report Type: Report from Study
  Country: US (occurrence: US)
  Receive Date: 20200619
  Receipt Date: 20200619
  Transmission Date: 20200714
  Serious: Yes (Other)
  Sender: FDA-Public Use
  Company Number: US-BIOVITRUM-2019US4252

PATIENT
  Age: 42 Year
  Sex: Male

DRUGS (1)
  1. KINERET [Suspect]
     Active Substance: ANAKINRA
     Indication: GOUT
     Route: 058
     Dates: start: 20191106

REACTIONS (4)
  - Immunodeficiency [Unknown]
  - Injection site induration [Unknown]
  - Mass [Unknown]
  - Off label use [Unknown]

NARRATIVE: CASE EVENT DATE: 20191106
